FAERS Safety Report 25276320 (Version 1)
Quarter: 2025Q2

REPORT INFORMATION
  Report Type: Spontaneous
  Country: US (occurrence: US)
  Receive Date: 20250507
  Receipt Date: 20250507
  Transmission Date: 20250716
  Serious: Yes (Other)
  Sender: SANOFI AVENTIS
  Company Number: US-SA-2025SA127037

PATIENT
  Age: 80 Year
  Sex: Male

DRUGS (1)
  1. DUPIXENT [Suspect]
     Active Substance: DUPILUMAB
     Route: 058
     Dates: start: 20250424

REACTIONS (8)
  - Pain in extremity [Unknown]
  - Chills [Unknown]
  - Nausea [Unknown]
  - Abdominal distension [Unknown]
  - Pollakiuria [Unknown]
  - Dyspnoea [Unknown]
  - Visual impairment [Unknown]
  - Back pain [Unknown]

NARRATIVE: CASE EVENT DATE: 20250425
